FAERS Safety Report 10898703 (Version 1)
Quarter: 2015Q1

REPORT INFORMATION
  Report Type: Report from Study
  Country: US (occurrence: US)
  Receive Date: 20150309
  Receipt Date: 20150309
  Transmission Date: 20150721
  Serious: Yes (Other)
  Sender: FDA-Public Use
  Company Number: US-ABBVIE-14P-163-1242711-00

PATIENT
  Sex: Female

DRUGS (1)
  1. LUPRON DEPOT [Suspect]
     Active Substance: LEUPROLIDE ACETATE
     Indication: REPRODUCTIVE TRACT DISORDER
     Route: 030
     Dates: start: 201309, end: 201403

REACTIONS (2)
  - Off label use [Unknown]
  - Drug ineffective [Unknown]
